FAERS Safety Report 24285676 (Version 2)
Quarter: 2024Q3

REPORT INFORMATION
  Report Type: Report from Study
  Country: US (occurrence: US)
  Receive Date: 20240905
  Receipt Date: 20240910
  Transmission Date: 20241016
  Serious: Yes (Other)
  Sender: ROCHE
  Company Number: US-ROCHE-10000070648

PATIENT
  Age: 62 Year
  Sex: Female

DRUGS (16)
  1. PULMOZYME [Suspect]
     Active Substance: DORNASE ALFA
     Indication: Bronchiectasis
     Dosage: NEBULIZE THE CONTENTS OF 1 VIAL(S) TWICE A DAY
     Route: 065
  2. PULMOZYME [Suspect]
     Active Substance: DORNASE ALFA
     Indication: Bronchiolitis
  3. PULMOZYME [Suspect]
     Active Substance: DORNASE ALFA
     Indication: Asthma
  4. PULMOZYME [Suspect]
     Active Substance: DORNASE ALFA
     Indication: Lower respiratory tract infection
  5. PULMOZYME [Suspect]
     Active Substance: DORNASE ALFA
     Indication: Infection
  6. PULMOZYME [Suspect]
     Active Substance: DORNASE ALFA
     Indication: Essential hypertension
  7. PULMOZYME [Suspect]
     Active Substance: DORNASE ALFA
     Indication: Diabetes mellitus
  8. PULMOZYME [Suspect]
     Active Substance: DORNASE ALFA
     Indication: Fibromyalgia
  9. PULMOZYME [Suspect]
     Active Substance: DORNASE ALFA
     Indication: Arthritis
  10. PULMOZYME [Suspect]
     Active Substance: DORNASE ALFA
     Indication: Polyneuropathy alcoholic
  11. PULMOZYME [Suspect]
     Active Substance: DORNASE ALFA
     Indication: Central sleep apnoea syndrome
  12. PULMOZYME [Suspect]
     Active Substance: DORNASE ALFA
     Indication: Hyperlipidaemia
  13. PULMOZYME [Suspect]
     Active Substance: DORNASE ALFA
     Indication: Impaired gastric emptying
  14. PULMOZYME [Suspect]
     Active Substance: DORNASE ALFA
     Indication: Osteoporotic fracture
  15. PULMOZYME [Suspect]
     Active Substance: DORNASE ALFA
     Indication: Thyroid function test abnormal
  16. PULMOZYME [Suspect]
     Active Substance: DORNASE ALFA
     Indication: Anaemia

REACTIONS (3)
  - Off label use [Unknown]
  - Renal failure [Unknown]
  - Hypertension [Unknown]
